FAERS Safety Report 4626622-0 (Version None)
Quarter: 2005Q1

REPORT INFORMATION
  Report Type: 
  Country: None (occurrence: None)
  Receive Date: 20050330
  Receipt Date: 20050316
  Transmission Date: 20050727
  Serious: Yes (Hospitalization)
  Sender: FDA-Public Use
  Company Number: 200510517BWH

PATIENT

DRUGS (1)
  1. APROTININ [Suspect]
     Indication: CARDIAC OPERATION
     Dates: start: 20040101

REACTIONS (2)
  - ELECTROCARDIOGRAM ST SEGMENT ELEVATION [None]
  - POST PROCEDURAL COMPLICATION [None]
